FAERS Safety Report 23909090 (Version 2)
Quarter: 2024Q4

REPORT INFORMATION
  Report Type: Spontaneous
  Country: US (occurrence: US)
  Receive Date: 20240528
  Receipt Date: 20241231
  Transmission Date: 20250115
  Serious: Yes (Other)
  Sender: BAYER HEALTHCARE PHARMACEUTICALS INC.
  Company Number: US-BAYER-2024A075347

PATIENT
  Age: 50 Year
  Sex: Male

DRUGS (3)
  1. JIVI [Suspect]
     Active Substance: DAMOCTOCOG ALFA PEGOL
     Indication: Prophylaxis
     Dosage: JIVI 2220 UNITS INFUSED DOSE 2400 UNITS/4800 UNITS
     Route: 042
  2. JIVI [Suspect]
     Active Substance: DAMOCTOCOG ALFA PEGOL
     Indication: Prophylaxis
     Dosage: 1 DF
     Route: 042
     Dates: start: 20240711
  3. CORTIZONE 10 [Concomitant]
     Active Substance: HYDROCORTISONE
     Dosage: BOTH RIGHT AND LEFT ANKLE
     Dates: start: 20240712

REACTIONS (2)
  - Haemarthrosis [None]
  - Cough [None]
